FAERS Safety Report 24900013 (Version 1)
Quarter: 2025Q1

REPORT INFORMATION
  Report Type: Spontaneous
  Country: CN (occurrence: CN)
  Receive Date: 20250129
  Receipt Date: 20250129
  Transmission Date: 20250409
  Serious: Yes (Hospitalization, Other)
  Sender: ELI LILLY AND COMPANY
  Company Number: CN-Merck Healthcare KGaA-2025002997

PATIENT
  Age: 82 Year
  Sex: Female
  Weight: 52 kg

DRUGS (5)
  1. ERBITUX [Suspect]
     Active Substance: CETUXIMAB
     Indication: Skin cancer
     Dosage: 500 MG, WEEKLY (1/W)
     Route: 065
     Dates: start: 20241219, end: 20241227
  2. CAPECITABINE [Suspect]
     Active Substance: CAPECITABINE
     Indication: Skin cancer
     Dosage: 0.5 G, BID
     Route: 048
     Dates: start: 20241215, end: 20250101
  3. CISPLATIN [Suspect]
     Active Substance: CISPLATIN
     Indication: Skin cancer
     Dosage: 30 MG, DAILY
     Route: 041
     Dates: start: 20241215, end: 20241216
  4. SODIUM CHLORIDE [Concomitant]
     Active Substance: SODIUM CHLORIDE
     Indication: Medication dilution
     Dosage: 250 ML, DAILY
     Route: 041
     Dates: start: 20241215, end: 20241216
  5. SODIUM CHLORIDE [Concomitant]
     Active Substance: SODIUM CHLORIDE
     Dosage: 250 ML, WEEKLY (1/W)
     Dates: start: 20241219, end: 20241227

REACTIONS (1)
  - Myelosuppression [Recovering/Resolving]

NARRATIVE: CASE EVENT DATE: 20250104
